FAERS Safety Report 20108381 (Version 8)
Quarter: 2022Q4

REPORT INFORMATION
  Report Type: Spontaneous
  Country: US (occurrence: US)
  Receive Date: 20211124
  Receipt Date: 20221205
  Transmission Date: 20230113
  Serious: No
  Sender: FDA-Public Use
  Company Number: US-PFIZER INC-202101454205

PATIENT
  Age: 60 Year
  Sex: Female
  Weight: 56.245 kg

DRUGS (3)
  1. GENOTROPIN [Suspect]
     Active Substance: SOMATROPIN
     Indication: Hypothalamo-pituitary disorder
     Dosage: 0.3 MG, 1X/DAY
     Dates: start: 202108
  2. GENOTROPIN [Suspect]
     Active Substance: SOMATROPIN
     Indication: Blood growth hormone decreased
  3. GENOTROPIN [Suspect]
     Active Substance: SOMATROPIN
     Indication: Craniocerebral injury

REACTIONS (5)
  - Pain in extremity [Recovered/Resolved]
  - Hypertonia [Recovered/Resolved]
  - Therapeutic response unexpected [Unknown]
  - Incorrect dose administered [Unknown]
  - Drug effective for unapproved indication [Unknown]

NARRATIVE: CASE EVENT DATE: 20220718
